FAERS Safety Report 16334150 (Version 5)
Quarter: 2020Q1

REPORT INFORMATION
  Report Type: Report from Study
  Country: US (occurrence: US)
  Receive Date: 20190520
  Receipt Date: 20200217
  Transmission Date: 20200409
  Serious: Yes (Other)
  Sender: FDA-Public Use
  Company Number: PHEH2019US021067

PATIENT
  Sex: Female

DRUGS (1)
  1. GILENYA [Suspect]
     Active Substance: FINGOLIMOD HYDROCHLORIDE
     Indication: MULTIPLE SCLEROSIS
     Dosage: 0.5 MG, QD
     Route: 048
     Dates: start: 20180817

REACTIONS (7)
  - Diabetic retinopathy [Unknown]
  - Contusion [Unknown]
  - Migraine [Recovering/Resolving]
  - Diabetes mellitus [Unknown]
  - Fall [Unknown]
  - Pain in extremity [Unknown]
  - Pain [Unknown]
